FAERS Safety Report 25901032 (Version 1)
Quarter: 2025Q4

REPORT INFORMATION
  Report Type: Spontaneous
  Country: EU (occurrence: EU)
  Receive Date: 20251009
  Receipt Date: 20251009
  Transmission Date: 20260118
  Serious: Yes (Other)
  Sender: RANBAXY
  Company Number: EU-SUN PHARMACEUTICAL INDUSTRIES LTD-2025R1-530374

PATIENT
  Age: 32 Year
  Sex: Female

DRUGS (6)
  1. ATOSIBAN [Suspect]
     Active Substance: ATOSIBAN
     Indication: Tocolysis
     Dosage: 6.75 MILLIGRAM
     Route: 042
  2. ATOSIBAN [Suspect]
     Active Substance: ATOSIBAN
     Dosage: 75 MILLIGRAM
     Route: 042
  3. AZITHROMYCIN [Suspect]
     Active Substance: AZITHROMYCIN
     Indication: Antibiotic prophylaxis
     Dosage: 1 GRAM
     Route: 065
  4. AMPICILLIN [Suspect]
     Active Substance: AMPICILLIN
     Indication: Antibiotic prophylaxis
     Dosage: 2 GRAM
     Route: 065
  5. MAGNESIUM [Suspect]
     Active Substance: MAGNESIUM
     Indication: Product used for unknown indication
     Dosage: UNK (3X400 MG)
     Route: 065
  6. BETAMETHASONE [Suspect]
     Active Substance: BETAMETHASONE
     Indication: Maternal therapy to enhance foetal lung maturity
     Dosage: 12 MILLIGRAM
     Route: 030

REACTIONS (2)
  - Maternal exposure during pregnancy [Unknown]
  - Premature delivery [Unknown]
